FAERS Safety Report 5090954-5 (Version None)
Quarter: 2006Q3

REPORT INFORMATION
  Report Type: 
  Country: None (occurrence: None)
  Receive Date: 20060823
  Receipt Date: 20060808
  Transmission Date: 20061208
  Serious: Yes (Hospitalization)
  Sender: FDA-Public Use
  Company Number: US-2006-008904

PATIENT
  Age: 62 Year
  Sex: Female
  Weight: 93 kg

DRUGS (7)
  1. BETASERON [Suspect]
     Indication: RELAPSING-REMITTING MULTIPLE SCLEROSIS
     Dosage: 8 MIU, EVERY 2D, SUBCUTANEOUS
     Route: 058
     Dates: start: 20040326, end: 20060405
  2. BETASERON [Suspect]
     Indication: RELAPSING-REMITTING MULTIPLE SCLEROSIS
     Dosage: 8 MIU, EVERY 2D, SUBCUTANEOUS
     Route: 058
     Dates: start: 20060406
  3. PROZAC [Concomitant]
  4. VITAMIN B COMPLEX CAP [Concomitant]
  5. TOPROL-XL [Concomitant]
  6. LISINOPRIL W/HYDROCHLOROTHIAZIDE (LISINOPRIL) [Concomitant]
  7. FOLTX (PYRIDOXINE) [Concomitant]

REACTIONS (2)
  - CEREBROVASCULAR ACCIDENT [None]
  - TRANSIENT ISCHAEMIC ATTACK [None]
